FAERS Safety Report 7325846-1 (Version None)
Quarter: 2011Q1

REPORT INFORMATION
  Report Type: 
  Country: None (occurrence: None)
  Receive Date: 20110302
  Receipt Date: 20110218
  Transmission Date: 20110831
  Serious: Yes (Other)
  Sender: FDA-Public Use
  Company Number: US-SANOFI-AVENTIS-2010SA073293

PATIENT
  Age: 51 Year
  Sex: Female
  Weight: 69.8 kg

DRUGS (4)
  1. CLONAZEPAM [Concomitant]
     Dates: start: 20071019
  2. MULTAQ [Suspect]
     Indication: ATRIAL TACHYCARDIA
     Route: 048
     Dates: start: 20101126, end: 20110127
  3. ASPIRIN [Concomitant]
  4. METOPROLOL [Concomitant]
     Indication: ATRIAL TACHYCARDIA
     Dates: start: 20071012

REACTIONS (5)
  - OLFACTORY TEST ABNORMAL [None]
  - RASH PRURITIC [None]
  - BLOOD CREATININE INCREASED [None]
  - HEPATOCELLULAR INJURY [None]
  - OFF LABEL USE [None]
